FAERS Safety Report 24228166 (Version 1)
Quarter: 2024Q3

REPORT INFORMATION
  Report Type: Spontaneous
  Country: ES (occurrence: ES)
  Receive Date: 20240820
  Receipt Date: 20240820
  Transmission Date: 20241017
  Serious: Yes (Death, Other)
  Sender: RANBAXY
  Company Number: None

PATIENT

DRUGS (7)
  1. LENALIDOMIDE [Suspect]
     Active Substance: LENALIDOMIDE
     Indication: Diffuse large B-cell lymphoma recurrent
     Dosage: 10 MILLIGRAM, 10 MG/DAY ON DAYS 1-21 OF EACH 28-DAY CYCLE FOR A MAXIMUM OF 6 CYCLES
     Route: 048
  2. LENALIDOMIDE [Suspect]
     Active Substance: LENALIDOMIDE
     Dosage: 15 MG (COHORT B)
     Route: 048
  3. LENALIDOMIDE [Suspect]
     Active Substance: LENALIDOMIDE
     Dosage: 20 MG (COHORT C)
     Route: 048
  4. LENALIDOMIDE [Suspect]
     Active Substance: LENALIDOMIDE
     Dosage: 1.8 MG/KG (ALL COHORTS) (ADMINISTERED ON DAY 1-21 OF EACH 28-DAY CYCLE/SIX 28-DAY CYCLES)
     Route: 065
  5. RITUXIMAB [Suspect]
     Active Substance: RITUXIMAB
     Indication: Diffuse large B-cell lymphoma recurrent
     Dosage: 375 MILLIGRAM/SQ. METER, 375 MG/M2, CYCLIC (SIX 28-DAY CYCLES OF POLA+R+LEN AT THE RECOMMENDED PHASE
     Route: 042
  6. POLATUZUMAB VEDOTIN [Suspect]
     Active Substance: POLATUZUMAB VEDOTIN
     Indication: Diffuse large B-cell lymphoma refractory
     Dosage: 1.4 MILLIGRAM/KILOGRAM, 1.8 MG/KG (ALL COHORTS) (ADMINISTERED ON DAY 1-21 OF EACH 28-DAY CYCLE/SIX 2
     Route: 065
  7. POLATUZUMAB VEDOTIN [Suspect]
     Active Substance: POLATUZUMAB VEDOTIN
     Dosage: SIX 28-DAY CYCLES OF POLA+R+LEN AT THE RECOMMENDED PHASE 2 DOSE ESTABLISHED DURING DOSE ESCALATION
     Route: 042

REACTIONS (2)
  - Neutropenic sepsis [Fatal]
  - Product use issue [Unknown]
